FAERS Safety Report 10013685 (Version 1)
Quarter: 2014Q1

REPORT INFORMATION
  Report Type: Spontaneous
  Country: US (occurrence: US)
  Receive Date: 20140315
  Receipt Date: 20140315
  Transmission Date: 20141002
  Serious: Yes (Other)
  Sender: FDA-Public Use
  Company Number: US-ASTRAZENECA-2014SE16306

PATIENT
  Age: 42 Year
  Sex: Male

DRUGS (4)
  1. QUETIAPINE [Suspect]
     Indication: SCHIZOAFFECTIVE DISORDER
     Route: 048
  2. QUETIAPINE [Suspect]
     Indication: SCHIZOAFFECTIVE DISORDER
     Route: 048
  3. QUETIAPINE [Suspect]
     Indication: SCHIZOAFFECTIVE DISORDER
     Route: 048
  4. QUETIAPINE [Suspect]
     Indication: SCHIZOAFFECTIVE DISORDER
     Route: 048

REACTIONS (2)
  - Priapism [Recovered/Resolved]
  - Wrong drug administered [Unknown]
